FAERS Safety Report 4371828-1 (Version None)
Quarter: 2004Q2

REPORT INFORMATION
  Report Type: 
  Country: None (occurrence: None)
  Receive Date: 20040602
  Receipt Date: 20040602
  Transmission Date: 20050107
  Serious: Yes (Hospitalization)
  Sender: FDA-Public Use
  Company Number: None

PATIENT
  Age: 69 Year
  Sex: Male
  Weight: 92.5 kg

DRUGS (11)
  1. ZITHROMAX [Suspect]
  2. ENALAPRIL MALEATE [Concomitant]
  3. RANITIDINE HCL [Concomitant]
  4. GLIPIZIDE [Concomitant]
  5. SIMVASTATIN [Concomitant]
  6. DIPHENHYDRAMINE HCL [Concomitant]
  7. PREDNISONE [Concomitant]
  8. ACETAMINOPHEN [Concomitant]
  9. NAPROXEN [Concomitant]
  10. METFORMIN [Concomitant]
  11. FUROSEMIDE [Concomitant]

REACTIONS (1)
  - RASH [None]
